FAERS Safety Report 18792865 (Version 2)
Quarter: 2021Q1

REPORT INFORMATION
  Report Type: Spontaneous
  Country: US (occurrence: US)
  Receive Date: 20210127
  Receipt Date: 20210303
  Transmission Date: 20210419
  Serious: Yes (Other)
  Sender: FDA-Public Use
  Company Number: US-AMGEN-USASP2021009757

PATIENT

DRUGS (2)
  1. PROCRIT [Suspect]
     Active Substance: ERYTHROPOIETIN
     Indication: PROPHYLAXIS
     Dosage: 1000 U / KG / DOSE EVERY 48 HOUR FOR 6 DOSES
     Route: 042
  2. PROCRIT [Suspect]
     Active Substance: ERYTHROPOIETIN
     Dosage: 400 U / KG / DOSE 3 TIMES A WEEK
     Route: 058

REACTIONS (4)
  - Motor dysfunction [Unknown]
  - Cerebral palsy [Unknown]
  - Cognitive disorder [Unknown]
  - Neurodevelopmental disorder [Unknown]
